FAERS Safety Report 26046679 (Version 1)
Quarter: 2025Q4

REPORT INFORMATION
  Report Type: Report from Study
  Country: US (occurrence: US)
  Receive Date: 20251114
  Receipt Date: 20251114
  Transmission Date: 20260118
  Serious: Yes (Life-Threatening, Other)
  Sender: ALEXION PHARMACEUTICALS
  Company Number: US-AstraZeneca-CH-00992494A

PATIENT
  Sex: Male

DRUGS (1)
  1. OLAPARIB [Suspect]
     Active Substance: OLAPARIB
     Route: 065

REACTIONS (6)
  - Lung adenocarcinoma [Unknown]
  - BRCA2 gene mutation [Unknown]
  - Metastases to central nervous system [Unknown]
  - Metastases to pleura [Unknown]
  - Renal mass [Unknown]
  - Malignant neoplasm progression [Unknown]
